FAERS Safety Report 8258180-6 (Version None)
Quarter: 2012Q2

REPORT INFORMATION
  Report Type: 
  Country: None (occurrence: None)
  Receive Date: 20120404
  Receipt Date: 20120329
  Transmission Date: 20120825
  Serious: Yes (Hospitalization, Disabling, Other)
  Sender: FDA-Public Use
  Company Number: PHEH2012US006834

PATIENT
  Sex: Female

DRUGS (8)
  1. METOPROLOL SUCCINATE [Concomitant]
     Dosage: 100 MG, UNK
  2. CARBAMAZEPINE [Suspect]
  3. CRESTOR [Concomitant]
     Dosage: 40 MG, UNK
  4. MYSOLINE [Concomitant]
  5. LEVOTHYROXINE SODIUM [Concomitant]
  6. CORTISONE ACETATE [Concomitant]
  7. NIFEDIPINE [Concomitant]
     Dosage: 60 MG, UNK
  8. CORTISONE ACETATE [Concomitant]
     Dosage: 25 MG, UNK

REACTIONS (1)
  - GRAND MAL CONVULSION [None]
